FAERS Safety Report 8021627-4 (Version None)
Quarter: 2012Q1

REPORT INFORMATION
  Report Type: 
  Country: None (occurrence: None)
  Receive Date: 20120104
  Receipt Date: 20120104
  Transmission Date: 20120608
  Serious: Yes (Other)
  Sender: FDA-Public Use
  Company Number: None

PATIENT
  Age: 64 Year
  Sex: Male
  Weight: 70.76 kg

DRUGS (2)
  1. BONIVA [Suspect]
     Indication: OSTEOPENIA
     Dosage: 150 MG
     Route: 048
     Dates: start: 20080901, end: 20111231
  2. BONIVA [Suspect]
     Indication: OSTEOPOROSIS
     Dosage: 150 MG
     Route: 048
     Dates: start: 20080901, end: 20111231

REACTIONS (4)
  - LUMBAR VERTEBRAL FRACTURE [None]
  - SCIATICA [None]
  - DYSPEPSIA [None]
  - GROIN PAIN [None]
